FAERS Safety Report 5705319-X (Version None)
Quarter: 2008Q2

REPORT INFORMATION
  Report Type: 
  Country: None (occurrence: None)
  Receive Date: 20080410
  Receipt Date: 20080408
  Transmission Date: 20081010
  Serious: Yes (Death)
  Sender: FDA-Public Use
  Company Number: 2008-01223

PATIENT
  Age: 59 Year
  Sex: Female
  Weight: 50 kg

DRUGS (1)
  1. VELCADE [Suspect]
     Indication: MULTIPLE MYELOMA
     Dosage: INTRAVENOUS
     Route: 042
     Dates: start: 20080221, end: 20080312

REACTIONS (8)
  - BLOOD PRESSURE DECREASED [None]
  - CARDIOVASCULAR FUNCTION TEST ABNORMAL [None]
  - CONDITION AGGRAVATED [None]
  - DIALYSIS [None]
  - DISEASE PROGRESSION [None]
  - EXTRAPYRAMIDAL DISORDER [None]
  - FRACTURE [None]
  - NAUSEA [None]
